FAERS Safety Report 6596195-4 (Version None)
Quarter: 2010Q1

REPORT INFORMATION
  Report Type: 
  Country: None (occurrence: None)
  Receive Date: 20100223
  Receipt Date: 20100212
  Transmission Date: 20100710
  Serious: Yes (Death, Hospitalization)
  Sender: FDA-Public Use
  Company Number: US-ROCHE-674326

PATIENT
  Sex: Male
  Weight: 104.3 kg

DRUGS (2)
  1. CAPECITABINE [Suspect]
     Indication: COLORECTAL CANCER
     Dosage: FREQUENCY REPORTED AS 2 WEEKS ON AND ONE WEEK OFF
     Route: 048
     Dates: start: 20090309, end: 20091123
  2. OXALIPLATIN [Concomitant]
     Route: 065

REACTIONS (4)
  - DEATH [None]
  - DIVERTICULITIS [None]
  - HAEMATOCHEZIA [None]
  - LOSS OF CONSCIOUSNESS [None]
